FAERS Safety Report 6704612-1 (Version None)
Quarter: 2010Q2

REPORT INFORMATION
  Report Type: 
  Country: None (occurrence: None)
  Receive Date: 20100430
  Receipt Date: 20100420
  Transmission Date: 20101027
  Serious: Yes (Hospitalization)
  Sender: FDA-Public Use
  Company Number: AU-JNJFOC-20100406445

PATIENT
  Age: 58 Year
  Sex: Female

DRUGS (1)
  1. INVEGA [Suspect]
     Indication: ANXIETY DISORDER
     Route: 048

REACTIONS (4)
  - AKATHISIA [None]
  - MUSCLE CONTRACTURE [None]
  - PARAESTHESIA [None]
  - SEDATION [None]
